FAERS Safety Report 11757823 (Version 3)
Quarter: 2015Q4

REPORT INFORMATION
  Report Type: Spontaneous
  Country: US (occurrence: US)
  Receive Date: 20151120
  Receipt Date: 20151230
  Transmission Date: 20160304
  Serious: Yes (Death, Hospitalization)
  Sender: FDA-Public Use
  Company Number: US-NEPHRON PHARMACEUTICALS CORPORATION-1044458

PATIENT
  Age: 8 Month
  Sex: Female
  Weight: 9.55 kg

DRUGS (3)
  1. SODIUM CHLORIDE. [Suspect]
     Active Substance: SODIUM CHLORIDE
     Route: 055
     Dates: start: 20151113, end: 20151113
  2. PULMICORT RESPULES [Suspect]
     Active Substance: BUDESONIDE
     Route: 055
     Dates: start: 20151113, end: 20151113
  3. S2 [Suspect]
     Active Substance: RACEPINEPHRINE HYDROCHLORIDE
     Indication: UPPER RESPIRATORY TRACT INFECTION
     Route: 055
     Dates: start: 20151113, end: 20151113

REACTIONS (7)
  - Bacterial tracheitis [Fatal]
  - Pseudomonas infection [Not Recovered/Not Resolved]
  - Pseudomonas infection [Fatal]
  - Cardiopulmonary failure [Not Recovered/Not Resolved]
  - Death [Fatal]
  - Brain death [None]
  - Cardio-respiratory arrest [Fatal]

NARRATIVE: CASE EVENT DATE: 20151114
